FAERS Safety Report 7943398-X (Version None)
Quarter: 2011Q4

REPORT INFORMATION
  Report Type: 
  Country: None (occurrence: None)
  Receive Date: 20111128
  Receipt Date: 20111116
  Transmission Date: 20120403
  Serious: Yes (Other)
  Sender: FDA-Public Use
  Company Number: US-ELI_LILLY_AND_COMPANY-US201106002064

PATIENT
  Sex: Male

DRUGS (6)
  1. AMIODARONE HCL [Concomitant]
     Indication: ARRHYTHMIA
  2. FORTEO [Suspect]
     Indication: OSTEOPOROSIS
     Dosage: 20 UG, QD
     Dates: start: 20110518
  3. FORTEO [Suspect]
     Dosage: 20 UG, QD
  4. FORTEO [Suspect]
     Dosage: 20 UG, QD
     Route: 065
  5. RAPAFLO [Concomitant]
  6. FINASTERIDE [Concomitant]

REACTIONS (3)
  - HYPOTENSION [None]
  - DIZZINESS [None]
  - CONTUSION [None]
